FAERS Safety Report 7648598-4 (Version None)
Quarter: 2011Q3

REPORT INFORMATION
  Report Type: 
  Country: None (occurrence: None)
  Receive Date: 20110801
  Receipt Date: 20110719
  Transmission Date: 20111222
  Serious: Yes (Hospitalization, Other)
  Sender: FDA-Public Use
  Company Number: PHHO2010JP09115

PATIENT
  Sex: Male

DRUGS (20)
  1. ENALAPRIL MALEATE [Suspect]
     Indication: CARDIAC FAILURE
     Dosage: UNK
     Route: 048
     Dates: start: 20091201
  2. CARVEDILOL [Concomitant]
     Dosage: 2.5 MG, TID
     Route: 048
  3. BASEN [Concomitant]
     Dosage: 0.6 MG, UNK
     Route: 048
     Dates: start: 20100625
  4. CANDESARTAN CILEXETIL [Concomitant]
     Dosage: 2 MG, DAILY
     Route: 048
     Dates: start: 20110708
  5. EPADEL [Concomitant]
     Dosage: 1800 MG, UNK
     Route: 048
     Dates: start: 20080801
  6. BLINDED ALISKIREN [Suspect]
     Indication: CARDIAC FAILURE
     Dosage: CODE NOT BROKEN
     Route: 048
     Dates: start: 20100208, end: 20100614
  7. LASIX [Concomitant]
     Indication: CARDIAC FAILURE CHRONIC
     Dosage: 80 MG, BID
     Route: 048
     Dates: start: 20090903
  8. CARVEDILOL [Concomitant]
     Dosage: 5 MG, TID
     Route: 048
  9. ALOSITOL [Concomitant]
     Dosage: 100 MG, UNK
     Route: 048
     Dates: start: 20070821
  10. ENALAPRIL MALEATE [Suspect]
     Indication: CARDIAC FAILURE
     Dosage: CODE NOT BROKEN
     Route: 048
     Dates: start: 20100208, end: 20100614
  11. EQUA [Suspect]
     Dosage: 50 MG, QD
     Dates: start: 20110531
  12. LASIX [Concomitant]
     Dosage: 40 MG, DAILY
     Route: 048
  13. LASIX [Concomitant]
     Dosage: 20 MG, DAILY
     Route: 048
  14. CANDESARTAN CILEXETIL [Concomitant]
     Indication: CARDIAC FAILURE CHRONIC
     Dosage: 12 MG, QD
     Route: 048
     Dates: start: 20060825
  15. SPIRONOLACTONE [Concomitant]
     Indication: CARDIAC FAILURE CHRONIC
     Dosage: 25 MG, UNK
     Route: 048
     Dates: start: 20100625
  16. CARVEDILOL [Concomitant]
     Indication: CARDIAC FAILURE
     Dosage: 2.5 MG, TID
     Route: 048
     Dates: start: 20091102
  17. BLINDED NO TREATMENT RECEIVED [Suspect]
     Indication: CARDIAC FAILURE
     Dosage: CODE NOT BROKEN
     Route: 048
     Dates: start: 20100208, end: 20100614
  18. ALISKIREN [Suspect]
     Indication: CARDIAC FAILURE
     Dosage: UNK
     Route: 048
     Dates: start: 20100118
  19. ENALAPRIL MALEATE [Concomitant]
     Dosage: 20 MG, UNK
     Route: 048
     Dates: start: 20100614
  20. WARFARIN [Concomitant]
     Dosage: 3 MG, UNK
     Route: 048
     Dates: start: 20091006

REACTIONS (6)
  - HEART RATE DECREASED [None]
  - CARDIAC FAILURE [None]
  - MYOCARDIAL ISCHAEMIA [None]
  - DYSPNOEA [None]
  - OEDEMA [None]
  - RENAL FAILURE [None]
